FAERS Safety Report 20622351 (Version 1)
Quarter: 2022Q1

REPORT INFORMATION
  Report Type: Spontaneous
  Country: CN (occurrence: None)
  Receive Date: 20220322
  Receipt Date: 20220322
  Transmission Date: 20220423
  Serious: Yes (Other)
  Sender: FDA-Public Use
  Company Number: 2022A117670

PATIENT
  Age: 17532 Day
  Sex: Female
  Weight: 82 kg

DRUGS (2)
  1. OSIMERTINIB MESYLATE [Suspect]
     Active Substance: OSIMERTINIB MESYLATE
     Indication: Lung neoplasm malignant
     Route: 048
     Dates: start: 20220222
  2. VITAMINS [Suspect]
     Active Substance: VITAMINS
     Indication: Lung neoplasm malignant
     Dosage: 1 VIAL DAILY
     Route: 041
     Dates: start: 20220309, end: 20220309

REACTIONS (7)
  - Tachycardia [Recovering/Resolving]
  - Metastases to bone [Unknown]
  - Myelosuppression [Recovering/Resolving]
  - Flushing [Recovering/Resolving]
  - Chest discomfort [Recovering/Resolving]
  - Tachypnoea [Recovering/Resolving]
  - Drug hypersensitivity [Recovering/Resolving]

NARRATIVE: CASE EVENT DATE: 20220309
